FAERS Safety Report 18861441 (Version 3)
Quarter: 2021Q1

REPORT INFORMATION
  Report Type: Report from Study
  Country: US (occurrence: US)
  Receive Date: 20210208
  Receipt Date: 20210301
  Transmission Date: 20210420
  Serious: Yes (Hospitalization, Other)
  Sender: FDA-Public Use
  Company Number: NVSC2021US021137

PATIENT
  Age: 62 Year
  Sex: Female

DRUGS (4)
  1. ENTRESTO [Suspect]
     Active Substance: SACUBITRIL\VALSARTAN
     Dosage: 1 DF (PILL), QD
     Route: 048
  2. PLAVIX [Concomitant]
     Active Substance: CLOPIDOGREL BISULFATE
     Indication: MYOCARDIAL INFARCTION
     Dosage: UNK
     Route: 065
  3. ENTRESTO [Suspect]
     Active Substance: SACUBITRIL\VALSARTAN
     Dosage: 97/103 MG
     Route: 048
  4. ENTRESTO [Suspect]
     Active Substance: SACUBITRIL\VALSARTAN
     Indication: PRODUCT USED FOR UNKNOWN INDICATION
     Dosage: UNK UNK, BID
     Route: 048

REACTIONS (16)
  - Incorrect dose administered [Unknown]
  - Dyspnoea [Unknown]
  - Decreased activity [Unknown]
  - Neoplasm malignant [Unknown]
  - Cough [Unknown]
  - Diabetes mellitus [Unknown]
  - Fear [Unknown]
  - Ejection fraction abnormal [Unknown]
  - Product dose omission issue [Unknown]
  - Gait inability [Unknown]
  - Throat clearing [Unknown]
  - Memory impairment [Unknown]
  - Fatigue [Unknown]
  - Cardiac stress test abnormal [Unknown]
  - Weight increased [Unknown]
  - Blood pressure abnormal [Unknown]

NARRATIVE: CASE EVENT DATE: 2018
